FAERS Safety Report 10905511 (Version 2)
Quarter: 2015Q2

REPORT INFORMATION
  Report Type: Spontaneous
  Country: US (occurrence: US)
  Receive Date: 20150311
  Receipt Date: 20150403
  Transmission Date: 20150821
  Serious: Yes (Other)
  Sender: FDA-Public Use
  Company Number: US-PFIZER INC-2015086680

PATIENT
  Age: 56 Year
  Sex: Female
  Weight: 91 kg

DRUGS (6)
  1. CELEBREX [Suspect]
     Active Substance: CELECOXIB
     Indication: TENDONITIS
     Dosage: 100 MG, 2X/DAY
     Route: 048
     Dates: start: 20090815, end: 20100320
  2. XANAX [Concomitant]
     Active Substance: ALPRAZOLAM
     Indication: ANXIETY
     Dosage: 2 MG, DAILY
  3. CELEBREX [Suspect]
     Active Substance: CELECOXIB
     Indication: EPICONDYLITIS
  4. LISINOPRIL. [Concomitant]
     Active Substance: LISINOPRIL
     Indication: BLOOD PRESSURE INCREASED
     Dosage: 10 MG, AS NEEDED
  5. VICODIN [Concomitant]
     Active Substance: ACETAMINOPHEN\HYDROCODONE BITARTRATE
     Indication: BURSITIS
     Dosage: 10MG/325MG
  6. XANAX [Concomitant]
     Active Substance: ALPRAZOLAM
     Indication: SLEEP DISORDER

REACTIONS (7)
  - Chest pain [Recovered/Resolved]
  - Myocardial infarction [Unknown]
  - Pain in extremity [Unknown]
  - Vomiting [Unknown]
  - Transient ischaemic attack [Unknown]
  - Blood pressure increased [Unknown]
  - Hypoaesthesia oral [Unknown]

NARRATIVE: CASE EVENT DATE: 200910
